FAERS Safety Report 8942557 (Version 1)
Quarter: 2012Q4

REPORT INFORMATION
  Report Type: 
  Country: US (occurrence: US)
  Receive Date: 20121204
  Receipt Date: 20121204
  Transmission Date: 20130627
  Serious: No
  Sender: FDA-Public Use
  Company Number: US-VERTEX PHARMACEUTICALS INC.-2012-025459

PATIENT
  Age: 64 Year
  Sex: Female
  Weight: 72 kg

DRUGS (7)
  1. VX-950 (TELAPREVIR) [Suspect]
     Indication: HEPATITIS C
     Dosage: 750 mg, tid
     Route: 048
  2. PEGASYS [Concomitant]
     Dosage: 180 ?g, UNK
  3. ALENDRONATE [Concomitant]
     Dosage: 10 mg, qd
  4. RIBAVIRIN [Concomitant]
     Indication: HEPATITIS C
     Dosage: 200 mg, qd
  5. PROCHLORPERAZ [Concomitant]
     Dosage: 5 mg, qd
  6. ZOFRAN                             /00955301/ [Concomitant]
     Dosage: 4 mg, qd
  7. ARIMIDEX [Concomitant]
     Dosage: 1 mg, qd

REACTIONS (3)
  - Influenza like illness [Unknown]
  - Rash [Unknown]
  - Nausea [Unknown]
